FAERS Safety Report 6719758-1 (Version None)
Quarter: 2010Q2

REPORT INFORMATION
  Report Type: 
  Country: None (occurrence: None)
  Receive Date: 20100511
  Receipt Date: 20100505
  Transmission Date: 20101027
  Serious: Yes (Other)
  Sender: FDA-Public Use
  Company Number: A0858374A

PATIENT
  Age: 56 Year
  Sex: Male

DRUGS (3)
  1. VENTOLIN [Suspect]
     Indication: ASTHMA
     Dosage: 2PUFF FOUR TIMES PER DAY
     Route: 055
     Dates: start: 20100428, end: 20100504
  2. LISINOPRIL [Concomitant]
  3. PROTONIX [Concomitant]

REACTIONS (7)
  - ASTHMA [None]
  - COUGH [None]
  - FEELING ABNORMAL [None]
  - MOANING [None]
  - NONSPECIFIC REACTION [None]
  - RESPIRATION ABNORMAL [None]
  - WHEEZING [None]
